FAERS Safety Report 21180418 (Version 1)
Quarter: 2022Q3

REPORT INFORMATION
  Report Type: Report from Study
  Country: CA (occurrence: CA)
  Receive Date: 20220806
  Receipt Date: 20220806
  Transmission Date: 20221027
  Serious: Yes (Other)
  Sender: FDA-Public Use
  Company Number: None

PATIENT
  Age: 53 Year
  Sex: Female

DRUGS (8)
  1. METHOTREXATE [Suspect]
     Active Substance: METHOTREXATE
     Indication: Product used for unknown indication
     Route: 065
  2. SECUKINUMAB [Suspect]
     Active Substance: SECUKINUMAB
     Indication: Psoriasis
     Dosage: 1 EVERY 1 MONTHS
     Route: 058
  3. BETAMETHASONE [Concomitant]
     Active Substance: BETAMETHASONE
     Route: 065
  4. BETAMETHASONE DIPROPIONATE [Concomitant]
     Active Substance: BETAMETHASONE DIPROPIONATE
     Route: 065
  5. BETAMETHASONE VALERATE [Concomitant]
     Active Substance: BETAMETHASONE VALERATE
     Route: 065
  6. CALCIPOTRIENE [Concomitant]
     Active Substance: CALCIPOTRIENE
     Route: 065
  7. HYDERM [Concomitant]
     Route: 065
  8. LAMIVUDINE\NEVIRAPINE\STAVUDINE [Concomitant]
     Active Substance: LAMIVUDINE\NEVIRAPINE\STAVUDINE
     Route: 065

REACTIONS (5)
  - Candida infection [Unknown]
  - Candida pneumonia [Unknown]
  - Cystic fibrosis [Unknown]
  - Genital candidiasis [Unknown]
  - Oral candidiasis [Unknown]
